FAERS Safety Report 7039870-X (Version None)
Quarter: 2010Q4

REPORT INFORMATION
  Report Type: 
  Country: None (occurrence: None)
  Receive Date: 20101012
  Receipt Date: 20101011
  Transmission Date: 20110411
  Serious: Yes (Death, Hospitalization)
  Sender: FDA-Public Use
  Company Number: BE-BRISTOL-MYERS SQUIBB COMPANY-15154297

PATIENT
  Age: 60 Year
  Sex: Male
  Weight: 89 kg

DRUGS (9)
  1. CISPLATIN [Suspect]
     Indication: NON-SMALL CELL LUNG CANCER STAGE III
     Dosage: DAYS 1+8 RECENT DOSE:25MAY10
     Route: 042
     Dates: start: 20100419
  2. ETOPOSIDE [Suspect]
     Indication: NON-SMALL CELL LUNG CANCER STAGE III
     Dosage: DAYS 1TO5 RECENT DOSE:18MAY10
     Route: 042
     Dates: start: 20100419
  3. RADIATION THERAPY [Suspect]
     Indication: NON-SMALL CELL LUNG CANCER STAGE III
     Dosage: 1DF=2 GY*33,DAYS 1+8 RECENT DOSE:01JUN10
     Route: 065
     Dates: start: 20100419
  4. OMEPRAZOLE [Concomitant]
     Indication: GASTRIC DISORDER
     Dates: start: 20100518
  5. PARACODIN BITARTRATE TAB [Concomitant]
     Indication: COUGH
     Dates: start: 20100525
  6. PRIMPERAN [Concomitant]
     Indication: NAUSEA
     Dates: start: 20100518
  7. LIDOCAINE HYDROCHLORIDE [Concomitant]
     Indication: STOMATITIS
  8. DIPHENHYDRAMINE [Concomitant]
     Indication: STOMATITIS
  9. METOCLOPRAMIDE HCL [Concomitant]
     Indication: NAUSEA

REACTIONS (2)
  - FEBRILE NEUTROPENIA [None]
  - PNEUMONIA [None]
